FAERS Safety Report 23399947 (Version 1)
Quarter: 2024Q1

REPORT INFORMATION
  Report Type: Spontaneous
  Country: AU (occurrence: AU)
  Receive Date: 20240114
  Receipt Date: 20240114
  Transmission Date: 20240410
  Serious: Yes (Hospitalization, Other)
  Sender: FDA-Public Use
  Company Number: AU-AMGEN-AUSSP2024006055

PATIENT
  Age: 60 Year
  Sex: Male

DRUGS (20)
  1. TRASTUZUMAB [Suspect]
     Active Substance: TRASTUZUMAB
     Indication: HER2 positive gastric cancer
     Dosage: 6 MILLIGRAM PER KILOGRAM (DAY 1 OF CYCLE 1)
     Route: 042
     Dates: start: 20220711
  2. TRASTUZUMAB [Suspect]
     Active Substance: TRASTUZUMAB
     Dosage: 4 MILLIGRAM PER KILOGRAM (DAY 1 OF EACH CYCLE)
     Route: 042
  3. TRASTUZUMAB [Suspect]
     Active Substance: TRASTUZUMAB
     Dosage: UNK
     Route: 065
     Dates: start: 20230505
  4. TUCATINIB [Suspect]
     Active Substance: TUCATINIB
     Indication: HER2 positive gastric cancer
     Dosage: 250 MILLIGRAM, BID
     Route: 048
     Dates: start: 20220711
  5. TUCATINIB [Suspect]
     Active Substance: TUCATINIB
     Dosage: UNK
     Route: 065
     Dates: start: 20230518
  6. CYRAMZA [Suspect]
     Active Substance: RAMUCIRUMAB
     Indication: HER2 positive gastric cancer
     Dosage: 8 MILLIGRAM PER KILOGRAM (DAYS I AND 15 OF EACH 28-DAY CYCLE)
     Route: 042
  7. CYRAMZA [Suspect]
     Active Substance: RAMUCIRUMAB
     Dosage: UNK
     Route: 065
     Dates: start: 20230505
  8. PACLITAXEL [Suspect]
     Active Substance: PACLITAXEL
     Indication: HER2 positive gastric cancer
     Dosage: 80 MILLIGRAM PER SQUARE METER
     Route: 042
  9. PACLITAXEL [Suspect]
     Active Substance: PACLITAXEL
     Dosage: UNK
     Route: 042
  10. PACLITAXEL [Suspect]
     Active Substance: PACLITAXEL
     Dosage: UNK
     Route: 065
     Dates: start: 20220929
  11. COLCHICINE [Concomitant]
     Active Substance: COLCHICINE
     Indication: Hyperuricaemia
     Dosage: 200 MICROGRAM (INTERVAL 1 DAY)
     Route: 048
     Dates: start: 20170206
  12. LIPIDIL [Concomitant]
     Active Substance: FENOFIBRATE
     Indication: Blood cholesterol increased
     Dosage: 145 MILLIGRAM (INTERVAL  1DAY)
     Route: 048
     Dates: start: 20190428
  13. VITAMIN C [Concomitant]
     Active Substance: ASCORBIC ACID
  14. MAXOLON [Concomitant]
     Active Substance: METOCLOPRAMIDE HYDROCHLORIDE
     Indication: Nausea
     Dosage: 10 MILLIGRAM
     Route: 048
     Dates: start: 20221018
  15. ALLOPURINOL [Concomitant]
     Active Substance: ALLOPURINOL
  16. LOPERAMIDE [Concomitant]
     Active Substance: LOPERAMIDE
  17. FISH OIL [Concomitant]
     Active Substance: FISH OIL
  18. MAGNESIUM [Concomitant]
     Active Substance: MAGNESIUM
  19. PANTOPRAZOLE [Concomitant]
     Active Substance: PANTOPRAZOLE
  20. HYDROLATE [Concomitant]
     Dosage: GLUCOSE (+) POTASSIUM CHLORIDE (+) SODIUM CHLORIDE (+) SODIUM CITRATE DIHYDRATE

REACTIONS (1)
  - Syncope [Recovered/Resolved]

NARRATIVE: CASE EVENT DATE: 20230518
